FAERS Safety Report 18098631 (Version 17)
Quarter: 2022Q4

REPORT INFORMATION
  Report Type: Report from Study
  Country: US (occurrence: None)
  Receive Date: 20200731
  Receipt Date: 20221213
  Transmission Date: 20230113
  Serious: Yes (Life-Threatening, Hospitalization, Other)
  Sender: FDA-Public Use
  Company Number: US-ROCHE-2650965

PATIENT
  Age: 66 Year
  Sex: Female
  Weight: 110.15 kg

DRUGS (28)
  1. ATEZOLIZUMAB [Suspect]
     Active Substance: ATEZOLIZUMAB
     Indication: Adenocarcinoma of colon
     Dosage: 840 MG INTRAVENOUS ON DAY 1 CYCLES 13-25 DOSE WILL BE REDUCED AT C2D1.?MOST RECENT DOSE ON 01/APR/20
     Route: 041
     Dates: start: 20200219
  2. OXALIPLATIN [Suspect]
     Active Substance: OXALIPLATIN
     Indication: Adenocarcinoma of colon
     Dosage: OVER 2 HOURS ON DAY 1.
     Route: 042
     Dates: start: 20200219
  3. OXALIPLATIN [Suspect]
     Active Substance: OXALIPLATIN
     Dosage: ON 17/AUG/2020, RECEIVED LAST ADMINISTRATION
     Route: 042
  4. LEUCOVORIN CALCIUM [Suspect]
     Active Substance: LEUCOVORIN CALCIUM
     Indication: Adenocarcinoma of colon
     Dosage: OVER 2 HOURS ON DAY 1.
     Route: 042
     Dates: start: 20200219
  5. LEUCOVORIN CALCIUM [Suspect]
     Active Substance: LEUCOVORIN CALCIUM
     Dosage: ON 17/AUG/2020, RECEIVED LAST ADMINISTRATION.
     Route: 042
  6. FLUOROURACIL [Suspect]
     Active Substance: FLUOROURACIL
     Indication: Adenocarcinoma of colon
     Dosage: (BOLUS) ON DAY 1.
     Route: 040
     Dates: start: 20200219
  7. FLUOROURACIL [Suspect]
     Active Substance: FLUOROURACIL
     Dosage: ON 17/AUG/2020, RECEIVED LAST ADMINISTRATION OVER 2 HOURS ON DAY 1?FOLLOWED BY 2400 MG/M2 IV OVER 4
     Route: 042
  8. INSULIN NOS [Suspect]
     Active Substance: INSULIN NOS
     Indication: Product used for unknown indication
     Route: 065
  9. LEVETIRACETAM [Suspect]
     Active Substance: LEVETIRACETAM
     Indication: Product used for unknown indication
     Route: 065
  10. ALBUTEROL [Concomitant]
     Active Substance: ALBUTEROL
  11. AMLODIPINE [Concomitant]
     Active Substance: AMLODIPINE BESYLATE
  12. AMOXICILLIN [Concomitant]
     Active Substance: AMOXICILLIN
  13. ATORVASTATIN [Concomitant]
     Active Substance: ATORVASTATIN
  14. BACLOFEN [Concomitant]
     Active Substance: BACLOFEN
  15. CARVEDILOL [Concomitant]
     Active Substance: CARVEDILOL
  16. CHOLECALCIFEROL [Concomitant]
     Active Substance: CHOLECALCIFEROL
  17. CITALOPRAM [Concomitant]
     Active Substance: CITALOPRAM HYDROBROMIDE
  18. ATROPINE\DIPHENOXYLATE [Concomitant]
     Active Substance: ATROPINE\DIPHENOXYLATE
  19. FERROUS SULFATE [Concomitant]
     Active Substance: FERROUS SULFATE
  20. ACETAMINOPHEN\HYDROCODONE [Concomitant]
     Active Substance: ACETAMINOPHEN\HYDROCODONE
  21. INSULIN ASPART [Concomitant]
     Active Substance: INSULIN ASPART
  22. INSULIN GLARGINE [Concomitant]
     Active Substance: INSULIN GLARGINE
  23. LIDOCAINE [Concomitant]
     Active Substance: LIDOCAINE
  24. LISINOPRIL [Concomitant]
     Active Substance: LISINOPRIL
  25. MAGNESIUM [Concomitant]
     Active Substance: MAGNESIUM
  26. MONTELUKAST [Concomitant]
     Active Substance: MONTELUKAST SODIUM
  27. ROCEPHIN [Concomitant]
     Active Substance: CEFTRIAXONE SODIUM
  28. ZOSYN [Concomitant]
     Active Substance: PIPERACILLIN SODIUM\TAZOBACTAM SODIUM

REACTIONS (18)
  - Diarrhoea [Recovered/Resolved]
  - Hypoglycaemia [Recovered/Resolved]
  - Acute kidney injury [Recovered/Resolved]
  - Hypotension [Recovered/Resolved]
  - Urinary tract infection [Recovering/Resolving]
  - Sepsis [Unknown]
  - Haemorrhage intracranial [Unknown]
  - Urinary tract infection [Recovered/Resolved]
  - Hypoglycaemia [Recovered/Resolved]
  - Lethargy [Recovered/Resolved]
  - Confusional state [Recovered/Resolved]
  - Seizure [Recovered/Resolved]
  - Encephalitis [Recovering/Resolving]
  - Hypertension [Unknown]
  - Encephalopathy [Unknown]
  - Confusional state [Recovered/Resolved]
  - Seizure [Recovered/Resolved]
  - Diarrhoea [Recovered/Resolved]

NARRATIVE: CASE EVENT DATE: 20200226
